FAERS Safety Report 23909642 (Version 1)
Quarter: 2024Q2

REPORT INFORMATION
  Report Type: Report from Study
  Country: CA (occurrence: CA)
  Receive Date: 20240528
  Receipt Date: 20240528
  Transmission Date: 20240715
  Serious: Yes (Death)
  Sender: FDA-Public Use
  Company Number: CA-TAIHOP-2023-009325

PATIENT
  Age: 58 Year
  Sex: Female

DRUGS (2)
  1. LONSURF [Suspect]
     Active Substance: TIPIRACIL HYDROCHLORIDE\TRIFLURIDINE
     Indication: Colorectal cancer metastatic
     Dosage: CYCLE 1, FORM STRENGTH, DOSE AND FREQUENCY UNKNOWN
     Route: 048
     Dates: start: 20230925
  2. BEVA [Concomitant]
     Indication: Product used for unknown indication
     Dosage: DOSE, FREQUENCY UNKNOWN.

REACTIONS (8)
  - Death [Fatal]
  - Stress [Unknown]
  - Abdominal pain upper [Unknown]
  - Product distribution issue [Unknown]
  - Therapy interrupted [Unknown]
  - Abdominal discomfort [Unknown]
  - Treatment noncompliance [Unknown]
  - Disease progression [Unknown]
